FAERS Safety Report 21027156 (Version 2)
Quarter: 2022Q3

REPORT INFORMATION
  Report Type: Spontaneous
  Country: US (occurrence: US)
  Receive Date: 20220630
  Receipt Date: 20220708
  Transmission Date: 20221027
  Serious: No
  Sender: FDA-Public Use
  Company Number: US-SA-SAC20220629001403

PATIENT
  Age: 65 Year
  Sex: Female

DRUGS (1)
  1. DUPIXENT [Suspect]
     Active Substance: DUPILUMAB
     Indication: Paraesthesia
     Dosage: UNK
     Route: 065

REACTIONS (6)
  - Lacrimation increased [Unknown]
  - Eye pruritus [Unknown]
  - Product dose omission issue [Unknown]
  - Product distribution issue [Unknown]
  - Product storage error [Unknown]
  - Product use in unapproved indication [Unknown]
